FAERS Safety Report 24570967 (Version 1)
Quarter: 2024Q4

REPORT INFORMATION
  Report Type: Spontaneous
  Country: US (occurrence: US)
  Receive Date: 20241101
  Receipt Date: 20241101
  Transmission Date: 20250115
  Serious: No
  Sender: PAREXEL
  Company Number: US-STEMLINE THERAPEUTICS, INC-2024-STML-US004674

PATIENT

DRUGS (1)
  1. ORSERDU [Suspect]
     Active Substance: ELACESTRANT
     Indication: Product used for unknown indication
     Dosage: UNK
     Route: 065
     Dates: start: 20240702, end: 20240826

REACTIONS (3)
  - Metastases to liver [Unknown]
  - Hair growth abnormal [Unknown]
  - Malignant neoplasm progression [Unknown]
